FAERS Safety Report 13777935 (Version 3)
Quarter: 2017Q3

REPORT INFORMATION
  Report Type: Report from Study
  Country: PH (occurrence: PH)
  Receive Date: 20170721
  Receipt Date: 20170908
  Transmission Date: 20171127
  Serious: Yes (Other)
  Sender: FDA-Public Use
  Company Number: PH-ASTRAZENECA-2017SE63518

PATIENT
  Age: 77 Year
  Sex: Female

DRUGS (4)
  1. LIPITOR [Concomitant]
     Active Substance: ATORVASTATIN CALCIUM
     Indication: MEDICAL DIET
  2. IRESSA [Suspect]
     Active Substance: GEFITINIB
     Indication: AMINO ACID LEVEL INCREASED
     Dosage: 250.0MG UNKNOWN
     Route: 048
  3. TWYNSTA [Concomitant]
     Active Substance: AMLODIPINE BESYLATE\TELMISARTAN
     Indication: HYPERTENSION
  4. IRESSA [Suspect]
     Active Substance: GEFITINIB
     Indication: AMINO ACID LEVEL INCREASED
     Dosage: 250.0MG UNKNOWN
     Route: 048

REACTIONS (3)
  - Dry skin [Recovered/Resolved]
  - Nail bed bleeding [Recovered/Resolved]
  - Skin discolouration [Unknown]
